FAERS Safety Report 7042405-9 (Version None)
Quarter: 2010Q4

REPORT INFORMATION
  Report Type: 
  Country: None (occurrence: None)
  Receive Date: 20101013
  Receipt Date: 20100721
  Transmission Date: 20110411
  Serious: No
  Sender: FDA-Public Use
  Company Number: US-ASTRAZENECA-2010SE23997

PATIENT
  Sex: Female

DRUGS (3)
  1. SYMBICORT [Suspect]
     Indication: WHEEZING
     Dosage: 160/4.5 MCG 2 PUFFS 2 TIMES
     Route: 055
     Dates: start: 20100501
  2. WARFARIN SODIUM [Concomitant]
     Indication: ATRIAL FIBRILLATION
  3. PREDNISONE [Concomitant]

REACTIONS (1)
  - PROTHROMBIN TIME PROLONGED [None]
